FAERS Safety Report 4561205-2 (Version None)
Quarter: 2005Q1

REPORT INFORMATION
  Report Type: 
  Country: None (occurrence: None)
  Receive Date: 20050126
  Receipt Date: 20050118
  Transmission Date: 20050727
  Serious: No
  Sender: FDA-Public Use
  Company Number: PHEH2005US01007

PATIENT
  Age: 52 Year
  Sex: Male

DRUGS (1)
  1. LAMISIL [Suspect]
     Indication: ACCIDENTAL EXPOSURE
     Dosage: 250 MG, QID
     Route: 048

REACTIONS (1)
  - MEDICATION ERROR [None]
